FAERS Safety Report 21855338 (Version 1)
Quarter: 2023Q1

REPORT INFORMATION
  Report Type: Spontaneous
  Country: US (occurrence: US)
  Receive Date: 20230112
  Receipt Date: 20230112
  Transmission Date: 20230417
  Serious: Yes (Other)
  Sender: FDA-Public Use
  Company Number: US-AMGEN-USASP2023000744

PATIENT
  Sex: Male

DRUGS (6)
  1. REPATHA [Suspect]
     Active Substance: EVOLOCUMAB
     Indication: Blood cholesterol increased
     Dosage: 140 MILLIGRAM, Q2WK
     Route: 058
     Dates: start: 202110
  2. CREON [Concomitant]
     Active Substance: PANCRELIPASE AMYLASE\PANCRELIPASE LIPASE\PANCRELIPASE PROTEASE
  3. CLOPIDOGREL [Concomitant]
     Active Substance: CLOPIDOGREL BISULFATE
  4. LASIX [Concomitant]
     Active Substance: FUROSEMIDE
  5. ALLOPURINOL [Concomitant]
     Active Substance: ALLOPURINOL
  6. IBUPROFEN [Concomitant]
     Active Substance: IBUPROFEN

REACTIONS (4)
  - Colitis ulcerative [Unknown]
  - SARS-CoV-2 test positive [Unknown]
  - Rhinorrhoea [Unknown]
  - Back pain [Unknown]

NARRATIVE: CASE EVENT DATE: 20220101
